FAERS Safety Report 12022134 (Version 1)
Quarter: 2016Q1

REPORT INFORMATION
  Report Type: Report from Study
  Country: US (occurrence: US)
  Receive Date: 20160206
  Receipt Date: 20160206
  Transmission Date: 20160526
  Serious: No
  Sender: FDA-Public Use
  Company Number: US-ABBVIE-15K-163-1471425-00

PATIENT
  Age: 63 Year
  Sex: Female

DRUGS (2)
  1. HUMIRA [Suspect]
     Active Substance: ADALIMUMAB
     Indication: PSORIASIS
     Route: 065
     Dates: start: 20150828, end: 20150828
  2. HUMIRA [Suspect]
     Active Substance: ADALIMUMAB
     Route: 065
     Dates: start: 20150904, end: 20150904

REACTIONS (4)
  - Wound [Unknown]
  - Scratch [Unknown]
  - Animal bite [Recovering/Resolving]
  - Contusion [Unknown]

NARRATIVE: CASE EVENT DATE: 2015
